FAERS Safety Report 5833848-7 (Version None)
Quarter: 2008Q3

REPORT INFORMATION
  Report Type: 
  Country: None (occurrence: None)
  Receive Date: 20080805
  Receipt Date: 20080728
  Transmission Date: 20090109
  Serious: Yes (Disabling)
  Sender: FDA-Public Use
  Company Number: FR-JNJFOC-20080703649

PATIENT
  Age: 83 Year
  Sex: Female

DRUGS (3)
  1. TAVANIC [Suspect]
     Indication: BRONCHITIS
     Route: 048
  2. DOLIPRANE [Concomitant]
     Indication: MUSCULOSKELETAL PAIN
  3. ACEBUTOLOL [Concomitant]
     Indication: HYPERTENSION
     Route: 048

REACTIONS (2)
  - GAIT SPASTIC [None]
  - NEUROPATHY PERIPHERAL [None]
